FAERS Safety Report 5224581-3 (Version None)
Quarter: 2007Q1

REPORT INFORMATION
  Report Type: 
  Country: None (occurrence: None)
  Receive Date: 20070126
  Receipt Date: 20070112
  Transmission Date: 20070707
  Serious: Yes (Hospitalization)
  Sender: FDA-Public Use
  Company Number: 20063334

PATIENT
  Sex: Female

DRUGS (6)
  1. LIORESAL [Suspect]
     Indication: MUSCLE SPASTICITY
     Dosage: MCG, DAILY, INTRATHECAL
     Route: 037
  2. PRILOSEC [Concomitant]
  3. CODEINE [Concomitant]
  4. MORPHINE [Concomitant]
  5. PENICILLIN [Concomitant]
  6. SULFA [Concomitant]

REACTIONS (12)
  - BLOOD PRESSURE INCREASED [None]
  - CATHETER SITE RELATED REACTION [None]
  - COUGH [None]
  - DECREASED APPETITE [None]
  - DYSPHAGIA [None]
  - DYSPNOEA [None]
  - HYPONATRAEMIA [None]
  - MUSCLE SPASTICITY [None]
  - NASAL CONGESTION [None]
  - NAUSEA [None]
  - PAIN IN EXTREMITY [None]
  - URINARY TRACT INFECTION [None]
